FAERS Safety Report 6825415-3 (Version None)
Quarter: 2010Q3

REPORT INFORMATION
  Report Type: 
  Country: None (occurrence: None)
  Receive Date: 20100708
  Receipt Date: 20061215
  Transmission Date: 20110219
  Serious: Yes (Other)
  Sender: FDA-Public Use
  Company Number: US-PFIZER INC-2006154962

PATIENT
  Sex: Male
  Weight: 104.33 kg

DRUGS (2)
  1. CHANTIX [Suspect]
     Indication: SMOKING CESSATION THERAPY
     Dates: start: 20060901
  2. LUNESTA [Concomitant]
     Indication: INSOMNIA

REACTIONS (3)
  - DIZZINESS [None]
  - HEADACHE [None]
  - VERTIGO [None]
